FAERS Safety Report 23764142 (Version 1)
Quarter: 2024Q2

REPORT INFORMATION
  Report Type: Spontaneous
  Country: CN (occurrence: CN)
  Receive Date: 20240419
  Receipt Date: 20240419
  Transmission Date: 20240716
  Serious: Yes (Hospitalization, Other)
  Sender: FDA-Public Use
  Company Number: CN-009507513-2404CHN008932

PATIENT
  Age: 46 Year
  Sex: Male
  Weight: 67.5 kg

DRUGS (8)
  1. KEYTRUDA [Suspect]
     Active Substance: PEMBROLIZUMAB
     Indication: Tonsil cancer
     Dosage: 200 MG, EVERY 21 DAYS (Q3W), IV DRIP, START DATE ALSO REPORTED AS 29-JUL-2023
     Route: 041
     Dates: start: 20230728
  2. KEYTRUDA [Suspect]
     Active Substance: PEMBROLIZUMAB
     Dosage: 200 MG, EVERY 21 DAYS (Q3W), IV DRIP
     Route: 041
     Dates: start: 20230819
  3. KEYTRUDA [Suspect]
     Active Substance: PEMBROLIZUMAB
     Dosage: 200 MG, EVERY 21 DAYS (Q3W), IV DRIP
     Route: 041
     Dates: start: 20240113
  4. KEYTRUDA [Suspect]
     Active Substance: PEMBROLIZUMAB
     Dosage: 200 MG, EVERY 21 DAYS (Q3W), IV DRIP
     Route: 041
     Dates: start: 20240226
  5. CISPLATIN [Suspect]
     Active Substance: CISPLATIN
     Indication: Tonsil cancer
     Dosage: 130 MG
     Dates: start: 20230728
  6. CISPLATIN [Suspect]
     Active Substance: CISPLATIN
     Dosage: 130 MG
     Dates: start: 20230819
  7. FLUOROURACIL [Suspect]
     Active Substance: FLUOROURACIL
     Indication: Tonsil cancer
     Dosage: 6.5 GRAM (5 D)
     Dates: start: 20230728
  8. FLUOROURACIL [Suspect]
     Active Substance: FLUOROURACIL
     Dosage: 6.5 GRAM (5 D)
     Dates: start: 20230819

REACTIONS (8)
  - Drug-induced liver injury [Recovering/Resolving]
  - Hypothyroidism [Recovering/Resolving]
  - Rhabdomyolysis [Recovering/Resolving]
  - Hypoparathyroidism secondary [Recovering/Resolving]
  - Unresponsive to stimuli [Unknown]
  - Cancer surgery [Unknown]
  - Palpitations [Unknown]
  - Product use issue [Unknown]

NARRATIVE: CASE EVENT DATE: 20230728
